FAERS Safety Report 5295266-2 (Version None)
Quarter: 2007Q2

REPORT INFORMATION
  Report Type: 
  Country: None (occurrence: None)
  Receive Date: 20070412
  Receipt Date: 20070328
  Transmission Date: 20071010
  Serious: Yes (Other)
  Sender: FDA-Public Use
  Company Number: ES-PFIZER INC-2006127327

PATIENT
  Sex: Female
  Weight: 48 kg

DRUGS (5)
  1. PREGABALIN [Suspect]
     Indication: PAIN
     Dosage: DAILY DOSE:300MG
     Route: 048
  2. PARACETAMOL [Concomitant]
     Route: 048
  3. CLORAZEPATE DIPOTASSIUM [Concomitant]
     Route: 048
  4. INSULIN [Concomitant]
  5. TRANXILIUM [Concomitant]

REACTIONS (17)
  - ABDOMINAL DISTENSION [None]
  - AMENORRHOEA [None]
  - CLUMSINESS [None]
  - CONSTIPATION [None]
  - DIZZINESS [None]
  - DRY EYE [None]
  - DRY MOUTH [None]
  - EUPHORIC MOOD [None]
  - FATIGUE [None]
  - FEELING DRUNK [None]
  - HYPERGLYCAEMIA [None]
  - MEMORY IMPAIRMENT [None]
  - MICTURITION DISORDER [None]
  - NASAL DRYNESS [None]
  - PSYCHOMOTOR HYPERACTIVITY [None]
  - SOMNOLENCE [None]
  - URINARY INCONTINENCE [None]
